FAERS Safety Report 12705945 (Version 1)
Quarter: 2016Q3

REPORT INFORMATION
  Report Type: Spontaneous
  Country: US (occurrence: None)
  Receive Date: 20160831
  Receipt Date: 20160831
  Transmission Date: 20161109
  Serious: Yes (Life-Threatening, Hospitalization, Disabling)
  Sender: FDA-Public Use
  Company Number: None

PATIENT
  Age: 63 Year
  Sex: Female
  Weight: 61 kg

DRUGS (1)
  1. ISOVUE-M 300 [Suspect]
     Active Substance: IOPAMIDOL
     Indication: SPINAL MYELOGRAM
     Route: 037
     Dates: start: 20160810, end: 20160810

REACTIONS (4)
  - Meningitis [None]
  - Bacillus test positive [None]
  - CSF culture positive [None]
  - Depressed level of consciousness [None]

NARRATIVE: CASE EVENT DATE: 20160810
